FAERS Safety Report 19935996 (Version 1)
Quarter: 2021Q4

REPORT INFORMATION
  Report Type: Other
  Country: US (occurrence: US)
  Receive Date: 20211008
  Receipt Date: 20211008
  Transmission Date: 20220303
  Serious: Yes (Hospitalization, Disabling, Other)
  Sender: FDA-Public Use
  Company Number: US-NEOPHARMA INC-000647

PATIENT
  Age: 8 Year
  Sex: Female

DRUGS (2)
  1. AMOXICILLIN [Suspect]
     Active Substance: AMOXICILLIN
     Indication: Streptococcal bacteraemia
  2. DOXYCYCLINE [Concomitant]
     Active Substance: DOXYCYCLINE
     Indication: Rocky mountain spotted fever
     Dosage: 2MG/KG EVERY 12 HOURS

REACTIONS (7)
  - Meningoencephalitis viral [Recovered/Resolved]
  - Tremor [Recovered/Resolved]
  - Micturition urgency [Recovered/Resolved]
  - Ataxia [Recovered/Resolved]
  - Aphasia [Recovered/Resolved]
  - Drug ineffective [Unknown]
  - Condition aggravated [Recovered/Resolved]
